FAERS Safety Report 4965010-4 (Version None)
Quarter: 2006Q1

REPORT INFORMATION
  Report Type: 
  Country: None (occurrence: None)
  Receive Date: 20060207
  Receipt Date: 20050906
  Transmission Date: 20060701
  Serious: Yes (Hospitalization)
  Sender: FDA-Public Use
  Company Number: 246732

PATIENT
  Age: 7 Year
  Sex: Male
  Weight: 20.4 kg

DRUGS (3)
  1. NOVOLOG [Suspect]
     Indication: DIABETES MELLITUS INSULIN-DEPENDENT
     Dosage: SEE IMAGE
     Route: 058
     Dates: start: 20040101, end: 20050823
  2. NOVOLOG [Suspect]
     Indication: DIABETES MELLITUS INSULIN-DEPENDENT
     Dosage: SEE IMAGE
     Route: 058
     Dates: start: 20050823
  3. MINI MED METRONIC INSULIN PUMP [Concomitant]

REACTIONS (1)
  - DIABETIC KETOACIDOSIS [None]
